FAERS Safety Report 9679332 (Version 1)
Quarter: 2013Q4

REPORT INFORMATION
  Report Type: Spontaneous
  Country: US (occurrence: US)
  Receive Date: 20131109
  Receipt Date: 20131109
  Transmission Date: 20140711
  Serious: No
  Sender: FDA-Public Use
  Company Number: US-SANOFI-AVENTIS-2013SA002639

PATIENT
  Age: 69 Year
  Sex: Female

DRUGS (3)
  1. ALLEGRA-D [Suspect]
     Indication: RHINORRHOEA
     Dates: start: 20130109, end: 20130110
  2. ALLEGRA-D [Suspect]
     Indication: COUGH
     Dates: start: 20130109, end: 20130110
  3. ALLEGRA-D [Suspect]
     Indication: SNEEZING
     Dates: start: 20130109, end: 20130110

REACTIONS (1)
  - Insomnia [Not Recovered/Not Resolved]
